FAERS Safety Report 19458386 (Version 1)
Quarter: 2021Q2

REPORT INFORMATION
  Report Type: Spontaneous
  Country: US (occurrence: US)
  Receive Date: 20210624
  Receipt Date: 20210624
  Transmission Date: 20210717
  Serious: Yes (Hospitalization)
  Sender: FDA-Public Use
  Company Number: None

PATIENT
  Age: 52 Year
  Sex: Female

DRUGS (16)
  1. METHYLPRED [Concomitant]
     Active Substance: METHYLPREDNISOLONE
  2. TAMSULOSIN [Concomitant]
     Active Substance: TAMSULOSIN
  3. TRINTELLIX [Concomitant]
     Active Substance: VORTIOXETINE HYDROBROMIDE
  4. CEPHALEXIN. [Concomitant]
     Active Substance: CEPHALEXIN
  5. VALIUM [Concomitant]
     Active Substance: DIAZEPAM
  6. ESCUTAOPRAM [Concomitant]
  7. MYRBETRIQ [Concomitant]
     Active Substance: MIRABEGRON
  8. BACLOFEN. [Concomitant]
     Active Substance: BACLOFEN
  9. TOLTERODINE [Concomitant]
     Active Substance: TOLTERODINE
  10. DIMETHYL FUM [Suspect]
     Active Substance: DIMETHYL FUMARATE
     Indication: MULTIPLE SCLEROSIS
     Route: 048
     Dates: start: 20201210
  11. HYDROMORPHON [Concomitant]
     Active Substance: HYDROMORPHONE
  12. KETAMINE HCL SOL [Concomitant]
  13. LAMOTRIGINE. [Concomitant]
     Active Substance: LAMOTRIGINE
  14. TRAZODONE [Concomitant]
     Active Substance: TRAZODONE HYDROCHLORIDE
  15. CYCLOBENZAPR [Concomitant]
     Active Substance: CYCLOBENZAPRINE
  16. DIAZEPAM. [Concomitant]
     Active Substance: DIAZEPAM

REACTIONS (1)
  - Flushing [None]

NARRATIVE: CASE EVENT DATE: 20201210
